FAERS Safety Report 25103150 (Version 2)
Quarter: 2025Q2

REPORT INFORMATION
  Report Type: Report from Study
  Country: US (occurrence: US)
  Receive Date: 20250321
  Receipt Date: 20250405
  Transmission Date: 20250716
  Serious: Yes (Other)
  Sender: ROCHE
  Company Number: US-ROCHE-10000222615

PATIENT
  Age: 42 Year
  Sex: Female
  Weight: 53.51 kg

DRUGS (21)
  1. AVASTIN [Suspect]
     Active Substance: BEVACIZUMAB
     Indication: Breast cancer female
     Dosage: 100 MG VAIL
     Route: 065
     Dates: start: 20230803
  2. AVASTIN [Suspect]
     Active Substance: BEVACIZUMAB
     Route: 065
     Dates: start: 20240208
  3. AVASTIN [Suspect]
     Active Substance: BEVACIZUMAB
     Route: 065
     Dates: start: 20240122
  4. HERCEPTIN [Suspect]
     Active Substance: TRASTUZUMAB
     Indication: Uterine cancer
     Route: 042
  5. PERJETA [Suspect]
     Active Substance: PERTUZUMAB
     Indication: Uterine cancer
     Route: 042
     Dates: start: 20250120
  6. PACLITAXEL [Concomitant]
     Active Substance: PACLITAXEL
  7. CARBOPLATIN [Concomitant]
     Active Substance: CARBOPLATIN
  8. FEMARA [Concomitant]
     Active Substance: LETROZOLE
     Route: 048
     Dates: start: 20240403
  9. TORSEMIDE [Concomitant]
     Active Substance: TORSEMIDE
     Route: 048
     Dates: start: 20240717
  10. ALDACTONE [Concomitant]
     Active Substance: SPIRONOLACTONE
     Route: 048
     Dates: start: 20240717
  11. NPLATE [Concomitant]
     Active Substance: ROMIPLOSTIM
     Dosage: 125 MCG DOSE
     Route: 058
     Dates: start: 20240815
  12. SPIRONOLACTONE [Concomitant]
     Active Substance: SPIRONOLACTONE
     Route: 048
     Dates: start: 20241126
  13. TORSEMIDE [Concomitant]
     Active Substance: TORSEMIDE
     Route: 048
     Dates: start: 20241205
  14. REGLAN [Concomitant]
     Active Substance: METOCLOPRAMIDE HYDROCHLORIDE
     Route: 048
     Dates: start: 20241226
  15. PANTOPRAZOLE SODIUM [Concomitant]
     Active Substance: PANTOPRAZOLE SODIUM
     Route: 048
     Dates: start: 20250107
  16. ORSERDU [Concomitant]
     Active Substance: ELACESTRANT
     Route: 048
     Dates: start: 20250121
  17. LYNPARZA [Concomitant]
     Active Substance: OLAPARIB
     Route: 048
     Dates: start: 20240205
  18. VERZENIO [Concomitant]
     Active Substance: ABEMACICLIB
  19. FERRLECIT [Concomitant]
     Active Substance: SODIUM FERRIC GLUCONATE COMPLEX
     Route: 058
     Dates: start: 20240217
  20. RETACRIT [Concomitant]
     Active Substance: EPOETIN ALFA-EPBX
     Dosage: 40000 UNIT DOSE.
     Dates: start: 20250220
  21. TRAZIMERA [Concomitant]
     Active Substance: TRASTUZUMAB-QYYP
     Route: 042
     Dates: start: 20250120

REACTIONS (38)
  - Off label use [Unknown]
  - Ill-defined disorder [Unknown]
  - Rectal haemorrhage [Recovered/Resolved]
  - Epistaxis [Unknown]
  - Gingival bleeding [Unknown]
  - Haematochezia [Recovered/Resolved]
  - Haemoptysis [Recovered/Resolved]
  - Neutropenia [Unknown]
  - Disease progression [Unknown]
  - Depression [Unknown]
  - Flatulence [Unknown]
  - Malignant ascites [Unknown]
  - Hypokalaemia [Unknown]
  - Anaemia [Unknown]
  - Oedema peripheral [Unknown]
  - Confusional state [Recovered/Resolved]
  - Cancer pain [Unknown]
  - Constipation [Unknown]
  - Thrombocytopenia [Unknown]
  - Metastases to bone [Unknown]
  - Anxiety [Unknown]
  - Insomnia [Unknown]
  - Nausea [Unknown]
  - Liver function test increased [Unknown]
  - Shunt infection [Unknown]
  - Back pain [Unknown]
  - Arthralgia [Unknown]
  - Gastrooesophageal reflux disease [Unknown]
  - Vision blurred [Unknown]
  - Abdominal distension [Unknown]
  - Hepatic cancer metastatic [Unknown]
  - Metastases to central nervous system [Unknown]
  - Oesophagitis [Unknown]
  - Hepatic cirrhosis [Unknown]
  - Splenomegaly [Unknown]
  - Upper respiratory tract infection [Unknown]
  - Hypovolaemia [Unknown]
  - Dehydration [Unknown]
